FAERS Safety Report 9106901 (Version 1)
Quarter: 2013Q1

REPORT INFORMATION
  Report Type: Spontaneous
  Country: US (occurrence: US)
  Receive Date: 20130221
  Receipt Date: 20130221
  Transmission Date: 20140127
  Serious: No
  Sender: FDA-Public Use
  Company Number: US-BAYER-2013-010559

PATIENT
  Age: 48 Year
  Sex: Male
  Weight: 99.32 kg

DRUGS (6)
  1. BAYER ADVANCED ASPIRIN REGULAR STRENGTH [Suspect]
     Dosage: 1 DF, BID
     Route: 048
     Dates: start: 201105
  2. BAYER ADVANCED ASPIRIN EXTRA STRENGTH [Suspect]
     Indication: PAIN
     Dosage: 1 DF, BID
     Route: 048
     Dates: start: 201209
  3. ALEVE CAPLET/TABLET,MIDOL EXTENDED RELIEF CAPLET [Suspect]
     Indication: PAIN
     Dosage: 1 DF, BID
     Route: 048
     Dates: start: 201209, end: 201209
  4. NOVOLOG [Concomitant]
  5. LANTUS [Concomitant]
  6. LISINOPRIL [Concomitant]

REACTIONS (5)
  - Therapeutic response decreased [None]
  - Therapeutic response decreased [None]
  - Abdominal pain upper [Recovered/Resolved]
  - Drug ineffective [Recovered/Resolved]
  - Incorrect drug administration duration [Recovered/Resolved]
